FAERS Safety Report 8464071-8 (Version None)
Quarter: 2012Q2

REPORT INFORMATION
  Report Type: 
  Country: None (occurrence: None)
  Receive Date: 20120625
  Receipt Date: 20120620
  Transmission Date: 20120825
  Serious: Yes (Hospitalization, Disabling)
  Sender: FDA-Public Use
  Company Number: FR-ROCHE-1079249

PATIENT
  Age: 68 Year
  Sex: Female

DRUGS (3)
  1. ASPIRIN [Concomitant]
     Route: 065
  2. ZELBORAF [Suspect]
     Indication: METASTATIC MALIGNANT MELANOMA
     Route: 065
  3. ATORVASTATIN [Concomitant]
     Route: 065

REACTIONS (4)
  - HEADACHE [None]
  - RETINAL ARTERY THROMBOSIS [None]
  - RASH [None]
  - VISUAL ACUITY REDUCED [None]
